FAERS Safety Report 21675687 (Version 1)
Quarter: 2022Q4

REPORT INFORMATION
  Report Type: Spontaneous
  Country: JP (occurrence: JP)
  Receive Date: 20221202
  Receipt Date: 20221202
  Transmission Date: 20230112
  Serious: Yes (Hospitalization, Disabling, Other)
  Sender: FDA-Public Use
  Company Number: JP-DSJP-DSJ-2022-123834

PATIENT
  Age: 7 Decade
  Sex: Female
  Weight: 40.9 kg

DRUGS (51)
  1. PRASUGREL HYDROCHLORIDE [Suspect]
     Active Substance: PRASUGREL HYDROCHLORIDE
     Indication: Cerebral haemorrhage
     Dosage: 3.75 MG, QD
     Route: 048
     Dates: start: 20220606, end: 20220616
  2. PRASUGREL HYDROCHLORIDE [Suspect]
     Active Substance: PRASUGREL HYDROCHLORIDE
     Indication: Intracranial aneurysm
  3. ASPIRIN [Suspect]
     Active Substance: ASPIRIN
     Dosage: UNK
     Route: 048
     Dates: start: 20220613, end: 20220616
  4. HEPARIN [Suspect]
     Active Substance: HEPARIN SODIUM
     Dosage: 4.4DF/DAY
     Route: 042
     Dates: start: 20220614, end: 20220614
  5. CONTRAST AGENTS [Concomitant]
     Dosage: UNK
     Route: 065
  6. EPHEDRINE HYDROCHLORIDE [Concomitant]
     Active Substance: EPHEDRINE HYDROCHLORIDE
     Dosage: 1DF/DAY
     Route: 065
     Dates: start: 20220614, end: 20220614
  7. PHENYLEPHRINE HYDROCHLORIDE [Concomitant]
     Active Substance: PHENYLEPHRINE HYDROCHLORIDE
     Dosage: 2DF/DAY
     Route: 065
     Dates: start: 20220614, end: 20220614
  8. ISOTONIC SODIUM CHLORIDE SOLUTION [Concomitant]
     Active Substance: SODIUM CHLORIDE
     Dosage: 100ML/DAY
     Route: 065
     Dates: start: 20220614, end: 20220614
  9. ISOTONIC SODIUM CHLORIDE SOLUTION [Concomitant]
     Active Substance: SODIUM CHLORIDE
     Dosage: 20ML/DAY
     Route: 065
     Dates: start: 20220614, end: 20220614
  10. ISOTONIC SODIUM CHLORIDE SOLUTION [Concomitant]
     Active Substance: SODIUM CHLORIDE
     Dosage: 50ML/DAY
     Route: 065
     Dates: start: 20220615, end: 20220615
  11. ISOTONIC SODIUM CHLORIDE SOLUTION [Concomitant]
     Active Substance: SODIUM CHLORIDE
     Dosage: 300ML/DAY
     Route: 065
     Dates: start: 20220616, end: 20220616
  12. ISOTONIC SODIUM CHLORIDE SOLUTION [Concomitant]
     Active Substance: SODIUM CHLORIDE
     Dosage: 100ML/DAY
     Route: 065
     Dates: start: 20220616, end: 20220616
  13. ISOTONIC SODIUM CHLORIDE SOLUTION [Concomitant]
     Active Substance: SODIUM CHLORIDE
     Dosage: 20ML/DAY
     Route: 065
     Dates: start: 20220617, end: 20220617
  14. ISOTONIC SODIUM CHLORIDE SOLUTION [Concomitant]
     Active Substance: SODIUM CHLORIDE
     Dosage: 200ML/DAY
     Route: 065
     Dates: start: 20220617, end: 20220617
  15. ISOTONIC SODIUM CHLORIDE SOLUTION [Concomitant]
     Active Substance: SODIUM CHLORIDE
     Dosage: 150ML/DAY
     Route: 065
     Dates: start: 20220617, end: 20220617
  16. ISOTONIC SODIUM CHLORIDE SOLUTION [Concomitant]
     Active Substance: SODIUM CHLORIDE
     Dosage: 100ML/DAY
     Route: 065
     Dates: start: 20220618, end: 20220618
  17. ISOTONIC SODIUM CHLORIDE SOLUTION [Concomitant]
     Active Substance: SODIUM CHLORIDE
     Dosage: 50ML/DAY
     Route: 065
     Dates: start: 20220619, end: 20220619
  18. SODIUM CHLORIDE [Concomitant]
     Active Substance: SODIUM CHLORIDE
     Dosage: 500ML/DAY
     Route: 065
     Dates: start: 20220614, end: 20220614
  19. SODIUM CHLORIDE [Concomitant]
     Active Substance: SODIUM CHLORIDE
     Dosage: 2L/DAY
     Route: 065
     Dates: start: 20220614, end: 20220614
  20. SODIUM CHLORIDE [Concomitant]
     Active Substance: SODIUM CHLORIDE
     Dosage: 1500ML/DAY
     Route: 065
     Dates: start: 20220614, end: 20220619
  21. SODIUM CHLORIDE [Concomitant]
     Active Substance: SODIUM CHLORIDE
     Dosage: 500ML/DAY
     Route: 065
     Dates: start: 20220620, end: 20220621
  22. BRIDION [Concomitant]
     Active Substance: SUGAMMADEX
     Dosage: 1DF/DAY
     Route: 065
     Dates: start: 20220614, end: 20220614
  23. XYLOCAINE [Concomitant]
     Active Substance: LIDOCAINE HYDROCHLORIDE
     Dosage: 20ML/DAY
     Route: 065
     Dates: start: 20220614, end: 20220614
  24. XYLOCAINE [Concomitant]
     Active Substance: LIDOCAINE HYDROCHLORIDE
     Dosage: 10ML/DAY
     Route: 065
     Dates: start: 20220614, end: 20220614
  25. XYLOCAINE [Concomitant]
     Active Substance: LIDOCAINE HYDROCHLORIDE
     Dosage: 10ML/DAY
     Route: 065
     Dates: start: 20220614, end: 20220614
  26. IOHEXOL [Concomitant]
     Active Substance: IOHEXOL
     Dosage: 1DF/DAY
     Route: 065
     Dates: start: 20220614, end: 20220614
  27. IOHEXOL [Concomitant]
     Active Substance: IOHEXOL
     Dosage: 1DF/DAY
     Route: 065
     Dates: start: 20220614, end: 20220614
  28. FENTANYL CITRATE [Concomitant]
     Active Substance: FENTANYL CITRATE
     Dosage: 1DF/DAY
     Route: 065
     Dates: start: 20220614, end: 20220614
  29. DIPRIVAN [Concomitant]
     Active Substance: PROPOFOL
     Dosage: 2DF/DAY
     Route: 065
     Dates: start: 20220614, end: 20220614
  30. REMIFENTANIL HYDROCHLORIDE [Concomitant]
     Active Substance: REMIFENTANIL HYDROCHLORIDE
     Dosage: 2MG/DAY
     Route: 065
     Dates: start: 20220614, end: 20220614
  31. ROCURONIUM BROMIDE [Concomitant]
     Active Substance: ROCURONIUM BROMIDE
     Dosage: 2DF/DAY
     Route: 065
     Dates: start: 20220614, end: 20220614
  32. BISOPROLOL FUMARATE [Concomitant]
     Active Substance: BISOPROLOL FUMARATE
     Dosage: UNK
     Route: 048
     Dates: start: 20220613
  33. ATORVASTATIN OD [Concomitant]
     Dosage: UNK
     Route: 048
     Dates: start: 20220613
  34. VONOPRAZAN FUMARATE [Concomitant]
     Active Substance: VONOPRAZAN FUMARATE
     Dosage: UNK
     Route: 048
     Dates: start: 20220613
  35. MAGNESIUM OXIDE [Concomitant]
     Active Substance: MAGNESIUM OXIDE
     Dosage: UNK
     Route: 048
     Dates: start: 20220613
  36. ACETAMINOPHEN [Concomitant]
     Active Substance: ACETAMINOPHEN
     Dosage: 1DF/DAY
     Route: 065
     Dates: start: 20220614, end: 20220614
  37. ACETAMINOPHEN [Concomitant]
     Active Substance: ACETAMINOPHEN
     Dosage: 2DF/DAY
     Route: 065
     Dates: start: 20220616, end: 20220616
  38. ACETAMINOPHEN [Concomitant]
     Active Substance: ACETAMINOPHEN
     Dosage: 3DF/DAY
     Route: 065
     Dates: start: 20220617, end: 20220617
  39. NICARDIPINE HYDROCHLORIDE [Concomitant]
     Active Substance: NICARDIPINE HYDROCHLORIDE
     Dosage: 2DF/DAY
     Route: 065
     Dates: start: 20220615, end: 20220615
  40. NICARDIPINE HYDROCHLORIDE [Concomitant]
     Active Substance: NICARDIPINE HYDROCHLORIDE
     Dosage: 4DF/DAY
     Route: 065
     Dates: start: 20220616, end: 20220616
  41. NICARDIPINE HYDROCHLORIDE [Concomitant]
     Active Substance: NICARDIPINE HYDROCHLORIDE
     Dosage: 6DF/DAY
     Route: 065
     Dates: start: 20220617, end: 20220617
  42. NICARDIPINE HYDROCHLORIDE [Concomitant]
     Active Substance: NICARDIPINE HYDROCHLORIDE
     Dosage: 4DF/DAY
     Route: 065
     Dates: start: 20220618, end: 20220618
  43. NICARDIPINE HYDROCHLORIDE [Concomitant]
     Active Substance: NICARDIPINE HYDROCHLORIDE
     Dosage: 2DF/DAY
     Route: 065
     Dates: start: 20220619, end: 20220619
  44. LANSOPRAZOLE [Concomitant]
     Active Substance: LANSOPRAZOLE
     Dosage: 30MG/DAY
     Route: 065
     Dates: start: 20220614, end: 20220614
  45. LANSOPRAZOLE [Concomitant]
     Active Substance: LANSOPRAZOLE
     Dosage: 30MG/DAY
     Route: 065
     Dates: start: 20220617, end: 20220617
  46. PRIMPERAN [Concomitant]
     Active Substance: METOCLOPRAMIDE HYDROCHLORIDE
     Dosage: 2DF/DAY
     Route: 065
     Dates: start: 20220614, end: 20220614
  47. PRIMPERAN [Concomitant]
     Active Substance: METOCLOPRAMIDE HYDROCHLORIDE
     Dosage: 3DF/DAY
     Route: 065
     Dates: start: 20220615, end: 20220615
  48. PRIMPERAN [Concomitant]
     Active Substance: METOCLOPRAMIDE HYDROCHLORIDE
     Dosage: 2DF/DAY
     Route: 065
     Dates: start: 20220616, end: 20220616
  49. CYANOCOBALAMIN\PYRIDOXINE HYDROCHLORIDE\THIAMINE [Concomitant]
     Active Substance: CYANOCOBALAMIN\PYRIDOXINE HYDROCHLORIDE\THIAMINE
     Dosage: 1DF/DAY
     Route: 065
     Dates: start: 20220615, end: 20220621
  50. UNSPECIFIED INGREDIENT [Concomitant]
     Active Substance: UNSPECIFIED INGREDIENT
     Dosage: 1DF/DAY
     Route: 065
     Dates: start: 20220615, end: 20220625
  51. UNSPECIFIED INGREDIENT [Concomitant]
     Active Substance: UNSPECIFIED INGREDIENT
     Dosage: 1DF/DAY
     Route: 065
     Dates: start: 20220627, end: 20220630

REACTIONS (2)
  - Hypernatraemia [Recovered/Resolved]
  - Cerebral haemorrhage [Recovering/Resolving]

NARRATIVE: CASE EVENT DATE: 20220616
